FAERS Safety Report 17246993 (Version 2)
Quarter: 2020Q1

REPORT INFORMATION
  Report Type: Spontaneous
  Country: AT (occurrence: AT)
  Receive Date: 20200108
  Receipt Date: 20200206
  Transmission Date: 20200409
  Serious: Yes (Other)
  Sender: FDA-Public Use
  Company Number: AT-ELI_LILLY_AND_COMPANY-AT201912013769

PATIENT
  Sex: Male

DRUGS (2)
  1. FORSTEO 250UG/ML [Suspect]
     Active Substance: TERIPARATIDE
     Indication: OSTEOPOROSIS
     Dosage: UNK UNK, DAILY
     Route: 058
     Dates: start: 20190730
  2. OLEOVIT [COLECALCIFEROL-CHOLESTERIN] [Concomitant]
     Indication: OSTEOPOROSIS

REACTIONS (7)
  - Blood sodium decreased [Not Recovered/Not Resolved]
  - Joint swelling [Not Recovered/Not Resolved]
  - Spider vein [Not Recovered/Not Resolved]
  - Angina pectoris [Recovered/Resolved]
  - Vascular pain [Recovering/Resolving]
  - Arrhythmia [Not Recovered/Not Resolved]
  - Blood pressure increased [Recovered/Resolved]

NARRATIVE: CASE EVENT DATE: 20190730
